FAERS Safety Report 4346119-5 (Version None)
Quarter: 2004Q1

REPORT INFORMATION
  Report Type: 
  Country: None (occurrence: None)
  Receive Date: 20040325
  Receipt Date: 20040216
  Transmission Date: 20041129
  Serious: No
  Sender: FDA-Public Use
  Company Number: USA040155873

PATIENT
  Age: 51 Year
  Sex: Male

DRUGS (1)
  1. FORTEO [Suspect]
     Dates: start: 20030918

REACTIONS (6)
  - ABDOMINAL PAIN [None]
  - DIARRHOEA [None]
  - DYSPEPSIA [None]
  - PAIN [None]
  - PAIN IN EXTREMITY [None]
  - RENAL PAIN [None]
